FAERS Safety Report 20501236 (Version 1)
Quarter: 2022Q1

REPORT INFORMATION
  Report Type: Spontaneous
  Country: US (occurrence: None)
  Receive Date: 20220218
  Receipt Date: 20220218
  Transmission Date: 20220424
  Serious: Yes (Other)
  Sender: FDA-Public Use
  Company Number: None

PATIENT
  Age: 76 Year
  Sex: Male
  Weight: 58.5 kg

DRUGS (9)
  1. HEXYLRESORCINOL [Suspect]
     Active Substance: HEXYLRESORCINOL
     Indication: Oropharyngeal pain
     Dosage: OTHER QUANTITY : 1 DROP(S);?OTHER FREQUENCY : EVERY 2 HOURS;?
     Route: 048
     Dates: start: 20220213, end: 20220218
  2. GABAPENTIN [Concomitant]
     Active Substance: GABAPENTIN
  3. TAMSULOSIN [Concomitant]
     Active Substance: TAMSULOSIN
  4. DICYCLOMINE [Concomitant]
     Active Substance: DICYCLOMINE HYDROCHLORIDE
  5. CYCLOBENZAPRINE [Concomitant]
     Active Substance: CYCLOBENZAPRINE
  6. MONTELUKAST [Concomitant]
     Active Substance: MONTELUKAST SODIUM
  7. BUDESONIDE [Concomitant]
     Active Substance: BUDESONIDE
  8. Mira Lax [Concomitant]
  9. MAGNESIUM OXIDE [Concomitant]
     Active Substance: MAGNESIUM OXIDE

REACTIONS (2)
  - Bowel movement irregularity [None]
  - Gastrointestinal pain [None]

NARRATIVE: CASE EVENT DATE: 20220218
